FAERS Safety Report 7527463-7 (Version None)
Quarter: 2011Q2

REPORT INFORMATION
  Report Type: 
  Country: None (occurrence: None)
  Receive Date: 20110607
  Receipt Date: 20110526
  Transmission Date: 20111010
  Serious: Yes (Other)
  Sender: FDA-Public Use
  Company Number: US-JNJFOC-20110600276

PATIENT
  Sex: Male
  Weight: 58.97 kg

DRUGS (5)
  1. ZYTIGA [Suspect]
     Indication: PROSTATE CANCER
     Route: 048
     Dates: start: 20110501
  2. LASIX [Concomitant]
     Indication: CARDIAC DISORDER
     Route: 048
     Dates: start: 20110401
  3. CORTISONE ACETATE [Concomitant]
     Indication: PRODUCT USED FOR UNKNOWN INDICATION
     Route: 048
     Dates: start: 20110501
  4. ZYTIGA [Suspect]
     Route: 048
  5. CARDIZEM [Concomitant]
     Indication: CARDIAC DISORDER
     Route: 048
     Dates: start: 20110401

REACTIONS (3)
  - BLOOD ALKALINE PHOSPHATASE INCREASED [None]
  - ASPARTATE AMINOTRANSFERASE INCREASED [None]
  - ALANINE AMINOTRANSFERASE INCREASED [None]
